FAERS Safety Report 22620627 (Version 11)
Quarter: 2023Q4

REPORT INFORMATION
  Report Type: Spontaneous
  Country: US (occurrence: US)
  Receive Date: 20230620
  Receipt Date: 20231219
  Transmission Date: 20240109
  Serious: Yes (Other)
  Sender: FDA-Public Use
  Company Number: US-PFIZER INC-PV202300106154

PATIENT
  Age: 76 Year
  Sex: Female
  Weight: 86.18 kg

DRUGS (3)
  1. BOSULIF [Suspect]
     Active Substance: BOSUTINIB MONOHYDRATE
     Indication: Philadelphia positive acute lymphocytic leukaemia
     Dosage: 500 MG, 1X/DAY (FOR 30 DAYS)
     Route: 048
     Dates: start: 202302
  2. BOSULIF [Suspect]
     Active Substance: BOSUTINIB MONOHYDRATE
     Dosage: 600 MG, 1X/DAY (ONE 500MG TABLET AND ONE 100MG TABLET ONCE A DAY FOR A TOTAL OF 600 MG DAILY)
     Route: 048
  3. BOSULIF [Suspect]
     Active Substance: BOSUTINIB MONOHYDRATE
     Dosage: 2 100MG TABLETS DAILY WITH FOOD. SWALLOW TABLET WHOLE; DO NOT BREAK, CRUSH OR CHEW
     Route: 048

REACTIONS (3)
  - Philadelphia chromosome positive [Unknown]
  - Diarrhoea [Recovering/Resolving]
  - Off label use [Unknown]

NARRATIVE: CASE EVENT DATE: 20230201
